FAERS Safety Report 15703895 (Version 1)
Quarter: 2018Q4

REPORT INFORMATION
  Report Type: Spontaneous
  Country: DE (occurrence: DE)
  Receive Date: 20181210
  Receipt Date: 20181210
  Transmission Date: 20190205
  Serious: Yes (Other)
  Sender: FDA-Public Use
  Company Number: DE-GLAXOSMITHKLINE-DE2018218951

PATIENT
  Sex: Female

DRUGS (1)
  1. ATMADISC [Suspect]
     Active Substance: FLUTICASONE PROPIONATE\SALMETEROL XINAFOATE
     Indication: BRONCHITIS
     Dosage: UNK
     Route: 055
     Dates: start: 2018

REACTIONS (12)
  - Pain [Unknown]
  - Wheezing [Unknown]
  - Deafness [Unknown]
  - Fungal infection [Unknown]
  - Rales [Unknown]
  - Swollen tongue [Unknown]
  - Cough [Unknown]
  - Dysphagia [Unknown]
  - Larynx irritation [Unknown]
  - Tremor [Unknown]
  - Tongue discomfort [Unknown]
  - Oropharyngeal pain [Unknown]

NARRATIVE: CASE EVENT DATE: 2018
